FAERS Safety Report 8208408-3 (Version None)
Quarter: 2012Q1

REPORT INFORMATION
  Report Type: 
  Country: None (occurrence: None)
  Receive Date: 20120314
  Receipt Date: 20120308
  Transmission Date: 20120608
  Serious: Yes (Death, Other)
  Sender: FDA-Public Use
  Company Number: KR-ELI_LILLY_AND_COMPANY-KR201203002565

PATIENT
  Age: 36 Year
  Sex: Female

DRUGS (2)
  1. PEMETREXED [Suspect]
     Indication: METASTASES TO CENTRAL NERVOUS SYSTEM
  2. CISPLATIN [Concomitant]
     Indication: METASTASES TO CENTRAL NERVOUS SYSTEM

REACTIONS (5)
  - NEOPLASM PROGRESSION [None]
  - DEATH [None]
  - FEBRILE NEUTROPENIA [None]
  - PNEUMONIA [None]
  - RENAL FAILURE ACUTE [None]
